FAERS Safety Report 8397025 (Version 2)
Quarter: 2013Q2

REPORT INFORMATION
  Report Type: Spontaneous
  Country: US (occurrence: None)
  Receive Date: 20111227
  Receipt Date: 20120426
  Transmission Date: 20140414
  Serious: Yes (Other)
  Sender: FDA-Public Use
  Company Number: PHEH2011US04937

PATIENT
  Age: 67 Year
  Sex: Female

DRUGS (5)
  1. GILENYA [Suspect]
     Indication: MULTIPLE SCLEROSIS
     Dosage: 0.5 MG, QD, ORAL
     Route: 048
     Dates: start: 201106
  2. CELEXA (CITALOPRAM HYDROBROMIDE) [Concomitant]
  3. DIOVAN (VALSARTAN) [Concomitant]
  4. BACLOFEN [Concomitant]
  5. TOPAMAX (TOPIRAMATE) [Concomitant]

REACTIONS (4)
  - HERPES ZOSTER [None]
  - CHEST PAIN [None]
  - RASH [None]
  - MUSCLE SPASMS [None]
